FAERS Safety Report 7984393-4 (Version None)
Quarter: 2011Q4

REPORT INFORMATION
  Report Type: 
  Country: None (occurrence: None)
  Receive Date: 20111216
  Receipt Date: 20111206
  Transmission Date: 20120403
  Serious: Yes (Other)
  Sender: FDA-Public Use
  Company Number: US-BAYER-2011-044777

PATIENT
  Age: 28 Year
  Sex: Female
  Weight: 85 kg

DRUGS (10)
  1. YASMIN [Suspect]
     Indication: ORAL CONTRACEPTION
     Dosage: UNK
     Dates: start: 20050601, end: 20080601
  2. ALPRAZOLAM [Concomitant]
     Indication: ANXIETY
     Dosage: 1 MG, TID
  3. XYZAL [Concomitant]
     Indication: MULTIPLE ALLERGIES
     Dosage: 5 MG, UNK
  4. YAZ [Suspect]
     Indication: ORAL CONTRACEPTION
     Dosage: UNK
     Dates: start: 20100401, end: 20100701
  5. ZYRTEC [Concomitant]
  6. YASMIN [Suspect]
     Dosage: UNK
     Dates: start: 20100701
  7. DROSPIRENONE AND ETHINYL ESTRADIOL [Suspect]
     Indication: ORAL CONTRACEPTION
     Dosage: UNK
     Dates: start: 20080701, end: 20090201
  8. ADDERALL 5 [Concomitant]
     Dosage: 20 MG, BID
  9. PROPOXYPHENE HYDROCHLORIDE [Concomitant]
     Indication: PAIN
  10. XANAX [Concomitant]
     Indication: ANXIETY

REACTIONS (8)
  - ANXIETY [None]
  - CHOLECYSTITIS CHRONIC [None]
  - INJURY [None]
  - GENERAL PHYSICAL HEALTH DETERIORATION [None]
  - ABDOMINAL PAIN [None]
  - CHOLELITHIASIS [None]
  - PAIN [None]
  - EMOTIONAL DISTRESS [None]
